FAERS Safety Report 4895208-5 (Version None)
Quarter: 2006Q1

REPORT INFORMATION
  Report Type: 
  Country: None (occurrence: None)
  Receive Date: 20060119
  Receipt Date: 20060109
  Transmission Date: 20060701
  Serious: Yes (Hospitalization)
  Sender: FDA-Public Use
  Company Number: 2005BH003675

PATIENT
  Age: 51 Year
  Sex: Male
  Weight: 90 kg

DRUGS (6)
  1. ADVATE (OCTOCOG ALFA) [Suspect]
     Indication: PROPHYLAXIS
     Dosage: SEE IMAGE, IV
     Route: 042
     Dates: start: 20041014, end: 20041017
  2. ADVATE (OCTOCOG ALFA) [Suspect]
     Indication: PROPHYLAXIS
     Dosage: SEE IMAGE, IV
     Route: 042
     Dates: start: 20041018, end: 20041018
  3. ADVATE (OCTOCOG ALFA) [Suspect]
     Indication: PROPHYLAXIS
     Dosage: SEE IMAGE, IV
     Route: 042
     Dates: start: 20041019, end: 20041019
  4. ADVATE (OCTOCOG ALFA) [Suspect]
     Indication: PROPHYLAXIS
     Dosage: SEE IMAGE, IV
     Route: 042
     Dates: start: 20041020, end: 20041020
  5. ADVATE (OCTOCOG ALFA) [Suspect]
     Indication: PROPHYLAXIS
     Dosage: SEE IMAGE, IV
     Route: 042
     Dates: start: 20041021, end: 20041021
  6. ADVATE (OCTOCOG ALFA) [Suspect]
     Indication: PROPHYLAXIS
     Dosage: SEE IMAGE, IV
     Route: 042
     Dates: start: 20041110, end: 20041117

REACTIONS (2)
  - HYDROCELE [None]
  - POST PROCEDURAL HAEMORRHAGE [None]
